FAERS Safety Report 5313599-8 (Version None)
Quarter: 2007Q2

REPORT INFORMATION
  Report Type: 
  Country: None (occurrence: None)
  Receive Date: 20070501
  Receipt Date: 20070425
  Transmission Date: 20071010
  Serious: Yes (Other)
  Sender: FDA-Public Use
  Company Number: US-JNJFOC-20070406079

PATIENT
  Sex: Female
  Weight: 58.97 kg

DRUGS (6)
  1. FENTANYL TRANSDERMAL SYSTEM [Suspect]
     Indication: PAIN
     Route: 062
  2. DURAGESIC-100 [Suspect]
     Route: 062
  3. DURAGESIC-100 [Suspect]
     Indication: PAIN
     Route: 062
  4. WELLBUTRIN [Concomitant]
     Indication: PAIN
     Route: 048
  5. WELLBUTRIN [Concomitant]
     Indication: DEPRESSION
     Route: 048
  6. MAXALT [Concomitant]
     Indication: MIGRAINE
     Route: 060

REACTIONS (4)
  - HOT FLUSH [None]
  - HYPOTHYROIDISM [None]
  - INSOMNIA [None]
  - PAIN [None]
